FAERS Safety Report 20803647 (Version 1)
Quarter: 2022Q2

REPORT INFORMATION
  Report Type: Report from Study
  Country: BR (occurrence: BR)
  Receive Date: 20220509
  Receipt Date: 20220509
  Transmission Date: 20220721
  Serious: Yes (Death, Other)
  Sender: FDA-Public Use
  Company Number: BR-NOVARTISPH-NVSC2021BR152623

PATIENT
  Age: 68 Year
  Sex: Male

DRUGS (2)
  1. COSENTYX [Suspect]
     Active Substance: SECUKINUMAB
     Indication: Psoriatic arthropathy
     Dosage: 300 MG
     Route: 065
     Dates: start: 20210610
  2. COSENTYX [Suspect]
     Active Substance: SECUKINUMAB
     Dosage: UNK
     Route: 065
     Dates: start: 20210624

REACTIONS (6)
  - Pulmonary oedema [Fatal]
  - Hypertension [Fatal]
  - Infarction [Unknown]
  - Pruritus [Recovering/Resolving]
  - Pain [Recovering/Resolving]
  - Disorientation [Unknown]

NARRATIVE: CASE EVENT DATE: 20210627
